FAERS Safety Report 5133958-6 (Version None)
Quarter: 2006Q4

REPORT INFORMATION
  Report Type: 
  Country: None (occurrence: None)
  Receive Date: 20061023
  Receipt Date: 20061023
  Transmission Date: 20070319
  Serious: No
  Sender: FDA-Public Use
  Company Number: None

PATIENT
  Sex: Female

DRUGS (2)
  1. TEMAZEPAM [Suspect]
     Indication: ANXIETY
     Dosage: 15 MG QHS PRN PO
     Route: 048
     Dates: start: 20030101, end: 20061020
  2. HYDROXYZINE [Suspect]
     Indication: ANXIETY
     Dosage: 100 MG BID PO
     Route: 048
     Dates: start: 20030101, end: 20061020

REACTIONS (1)
  - MEDICATION ERROR [None]
